FAERS Safety Report 24132635 (Version 1)
Quarter: 2024Q3

REPORT INFORMATION
  Report Type: Spontaneous
  Country: NL (occurrence: NL)
  Receive Date: 20240724
  Receipt Date: 20240724
  Transmission Date: 20241017
  Serious: Yes (Other)
  Sender: SANOFI AVENTIS
  Company Number: None

PATIENT
  Age: 77 Year
  Sex: Female

DRUGS (9)
  1. ZOPICLONE [Suspect]
     Active Substance: ZOPICLONE
     Indication: Insomnia
     Dosage: 7.5 MG, PRN (ONCE DAILY, 1 TABLET AS NEEDED)
     Dates: start: 20240522, end: 20240524
  2. ZOLPIDEM TARTRATE [Suspect]
     Active Substance: ZOLPIDEM TARTRATE
     Indication: Insomnia
     Dosage: 10 MG, PRN (ONE TABLET DAILY, AS NEEDED)
     Dates: start: 20220725
  3. FEXOFENADINE [Concomitant]
     Active Substance: FEXOFENADINE HYDROCHLORIDE
     Dosage: COATED TABLET, 120 MG (MILLIGRAMS)
  4. SPIRONOLACTONE [Concomitant]
     Active Substance: SPIRONOLACTONE
     Dosage: TABLET, 50 MG (MILLIGRAMS)
  5. DOMPERIDONE [Concomitant]
     Active Substance: DOMPERIDONE
     Dosage: TABLET, 10 MG (MILLIGRAMS)
  6. AMLODIPINE [Concomitant]
     Active Substance: AMLODIPINE BESYLATE
     Dosage: TABLET, 10 MG (MILLIGRAMS)
  7. ENALAPRIL [Concomitant]
     Active Substance: ENALAPRIL
     Dosage: TABLET, 20 MG (MILLIGRAMS)
  8. TAMSULOSIN [Concomitant]
     Active Substance: TAMSULOSIN
     Dosage: EXTENDED-RELEASE CAPSULE, 0.4 MG (MILLIGRAMS)
  9. ESOMEPRAZOLE [Concomitant]
     Active Substance: ESOMEPRAZOLE
     Dosage: ENTERIC-COATED CAPSULE, 40 MG (MILLIGRAMS)

REACTIONS (2)
  - Hallucination, visual [Recovered/Resolved]
  - Delusion [Recovered/Resolved]
